FAERS Safety Report 16370447 (Version 6)
Quarter: 2019Q4

REPORT INFORMATION
  Report Type: Report from Study
  Country: US (occurrence: US)
  Receive Date: 20190530
  Receipt Date: 20191218
  Transmission Date: 20200122
  Serious: No
  Sender: FDA-Public Use
  Company Number: PHEH2019US022932

PATIENT
  Sex: Female
  Weight: 68.26 kg

DRUGS (6)
  1. ADCIRCA [Concomitant]
     Active Substance: TADALAFIL
     Indication: PULMONARY ARTERIAL HYPERTENSION
     Route: 065
  2. TYVASO [Concomitant]
     Active Substance: TREPROSTINIL
     Indication: PULMONARY ARTERIAL HYPERTENSION
     Dosage: 3-9 BREATHS, QD
     Route: 055
     Dates: start: 20180326
  3. OPSUMIT [Concomitant]
     Active Substance: MACITENTAN
     Indication: PULMONARY ARTERIAL HYPERTENSION
     Route: 065
  4. TREPROSTINIL. [Suspect]
     Active Substance: TREPROSTINIL
     Indication: PULMONARY ARTERIAL HYPERTENSION
     Dosage: 26.2 NG/KG/MIN
     Route: 042
     Dates: start: 20190520
  5. TREPROSTINIL. [Suspect]
     Active Substance: TREPROSTINIL
     Dosage: 30 NG/KG/MIN CONTINUOUS
     Route: 042
  6. AMBRISENTAN [Concomitant]
     Active Substance: AMBRISENTAN
     Indication: PRODUCT USED FOR UNKNOWN INDICATION
     Route: 065

REACTIONS (4)
  - Headache [Unknown]
  - Nausea [Unknown]
  - Vomiting [Unknown]
  - Device occlusion [Unknown]
